FAERS Safety Report 6932641-1 (Version None)
Quarter: 2010Q3

REPORT INFORMATION
  Report Type: 
  Country: None (occurrence: None)
  Receive Date: 20100819
  Receipt Date: 20100809
  Transmission Date: 20110219
  Serious: Yes (Hospitalization, Other)
  Sender: FDA-Public Use
  Company Number: US-BAXTER-2010BH016896

PATIENT
  Sex: Male
  Weight: 10 kg

DRUGS (6)
  1. DIANEAL [Suspect]
     Indication: DYSPNOEA
     Route: 033
     Dates: end: 20100304
  2. DIANEAL [Suspect]
     Indication: PERITONEAL DIALYSIS
     Route: 033
     Dates: end: 20100304
  3. DIANEAL [Suspect]
     Route: 033
     Dates: start: 20100322, end: 20100420
  4. DIANEAL [Suspect]
     Route: 033
     Dates: start: 20100322, end: 20100420
  5. DIANEAL [Suspect]
     Route: 033
     Dates: start: 20100429
  6. DIANEAL [Suspect]
     Route: 033
     Dates: start: 20100429

REACTIONS (5)
  - DIAPHRAGMATIC DISORDER [None]
  - DYSPNOEA [None]
  - HYDROTHORAX [None]
  - PERITONEAL DISORDER [None]
  - PLEURAL EFFUSION [None]
